APPROVED DRUG PRODUCT: PROCAINAMIDE HYDROCHLORIDE
Active Ingredient: PROCAINAMIDE HYDROCHLORIDE
Strength: 500MG/ML
Dosage Form/Route: INJECTABLE;INJECTION
Application: A089416 | Product #001
Applicant: ABRAXIS PHARMACEUTICAL PRODUCTS
Approved: Nov 17, 1986 | RLD: No | RS: No | Type: DISCN